FAERS Safety Report 20699700 (Version 1)
Quarter: 2022Q2

REPORT INFORMATION
  Report Type: Spontaneous
  Country: US (occurrence: US)
  Receive Date: 20220412
  Receipt Date: 20220412
  Transmission Date: 20220720
  Serious: Yes (Hospitalization)
  Sender: FDA-Public Use
  Company Number: US-UNITED THERAPEUTICS-UNT-2022-007851

PATIENT
  Age: 43 Year
  Sex: Female

DRUGS (2)
  1. REMODULIN [Suspect]
     Active Substance: TREPROSTINIL
     Indication: Pulmonary arterial hypertension
     Dosage: UNK, CONTINUING
     Route: 058
     Dates: start: 20211104
  2. REMODULIN [Suspect]
     Active Substance: TREPROSTINIL
     Dosage: 0.0321 ?G/KG, CONTINUING
     Route: 058

REACTIONS (6)
  - Nausea [Unknown]
  - Dizziness [Unknown]
  - Respiratory tract congestion [Unknown]
  - COVID-19 [Unknown]
  - Device use error [Recovered/Resolved]
  - Device data issue [Recovered/Resolved]

NARRATIVE: CASE EVENT DATE: 20220215
